FAERS Safety Report 8209829-5 (Version None)
Quarter: 2012Q1

REPORT INFORMATION
  Report Type: 
  Country: None (occurrence: None)
  Receive Date: 20120314
  Receipt Date: 20120305
  Transmission Date: 20120608
  Serious: Yes (Other)
  Sender: FDA-Public Use
  Company Number: GB-B.I. PHARMACEUTICALS,INC./RIDGEFIELD-2011-UK-00078UK

PATIENT
  Age: 59 Year

DRUGS (2)
  1. PRAMIPEXOLE DIHYDROCHLORIDE [Suspect]
     Indication: PARKINSON'S DISEASE
     Dosage: 4.5 MG
     Route: 048
     Dates: start: 20060101
  2. MADOPAR [Suspect]
     Route: 048
     Dates: start: 20070101

REACTIONS (2)
  - PATHOLOGICAL GAMBLING [None]
  - CONDITION AGGRAVATED [None]
